FAERS Safety Report 9166074 (Version 4)
Quarter: 2013Q4

REPORT INFORMATION
  Report Type: Spontaneous
  Country: CL (occurrence: CL)
  Receive Date: 20130315
  Receipt Date: 20131014
  Transmission Date: 20140711
  Serious: Yes (Hospitalization, Disabling, Other)
  Sender: FDA-Public Use
  Company Number: CL-009507513-1211CHL004798

PATIENT
  Age: 58 Year
  Sex: Male

DRUGS (7)
  1. PEG-INTRON REDIPEN [Suspect]
     Indication: HEPATITIS C
     Dosage: 120MCG/0.5ML, WEEKLY; FORMULATION: PREFILLED PEN
     Route: 058
     Dates: start: 20121019
  2. PEG-INTRON REDIPEN [Suspect]
     Dosage: 100MCG/0.5ML, EVERY FRIDAYS; FORMULATION: PREFILLED PEN
     Route: 058
     Dates: end: 20130915
  3. REBETOL [Suspect]
     Indication: HEPATITIS C
     Dosage: 1000 MG PER DAY, 1 IN THE MORNING AND 2 IN THE NIGHT
     Route: 048
     Dates: start: 20121019
  4. REBETOL [Suspect]
     Dosage: 600MG DAILY(1 TABLET IN THE MORNING AND 2 TABLETS IN THE NIGHTS)
     Route: 048
     Dates: end: 20130915
  5. NEORAL [Concomitant]
     Indication: IMMUNOSUPPRESSION
     Dosage: 150 MG, DAY
     Route: 048
  6. LEVOTHYROXINE SODIUM [Concomitant]
     Dosage: 100 MICROGRAM, DAY
     Route: 048
  7. MYCOPHENOLATE MOFETIL [Concomitant]
     Indication: IMMUNOSUPPRESSION
     Dosage: UNK
     Route: 048

REACTIONS (16)
  - Nasal dryness [Not Recovered/Not Resolved]
  - Anaemia [Recovered/Resolved]
  - Activities of daily living impaired [Not Recovered/Not Resolved]
  - Dandruff [Not Recovered/Not Resolved]
  - Feeling cold [Unknown]
  - Back pain [Unknown]
  - Eating disorder [Unknown]
  - Feeling abnormal [Not Recovered/Not Resolved]
  - Mental impairment [Not Recovered/Not Resolved]
  - Boredom [Unknown]
  - Cough [Unknown]
  - Myalgia [Unknown]
  - Pyrexia [Unknown]
  - Fatigue [Unknown]
  - Decreased appetite [Unknown]
  - Asthenia [Not Recovered/Not Resolved]
